FAERS Safety Report 7191851-1 (Version None)
Quarter: 2010Q4

REPORT INFORMATION
  Report Type: 
  Country: None (occurrence: None)
  Receive Date: 20101223
  Receipt Date: 20101216
  Transmission Date: 20110411
  Serious: Yes (Other)
  Sender: FDA-Public Use
  Company Number: ES-PFIZER INC-2010174311

PATIENT
  Age: 49 Year
  Sex: Female

DRUGS (3)
  1. LYRICA [Suspect]
     Dosage: 2 TABLETS OF 75 MG IN THE MORNINGS AND 1 TABLET 75 MG IN THE EVENING
     Route: 048
     Dates: start: 20101212
  2. PAROXETINE [Concomitant]
  3. ESPIDIFEN [Concomitant]

REACTIONS (5)
  - BACK PAIN [None]
  - CONVULSION [None]
  - DRUG INEFFECTIVE [None]
  - DRY MOUTH [None]
  - STOMATITIS [None]
